FAERS Safety Report 24850846 (Version 2)
Quarter: 2025Q3

REPORT INFORMATION
  Report Type: Spontaneous
  Country: EU (occurrence: EU)
  Receive Date: 20250116
  Receipt Date: 20250802
  Transmission Date: 20251021
  Serious: Yes (Other)
  Sender: ALEXION PHARMACEUTICALS
  Company Number: EU-AstraZeneca-CH-00782572A

PATIENT
  Sex: Male

DRUGS (5)
  1. KOSELUGO [Suspect]
     Active Substance: SELUMETINIB
     Indication: Neurofibromatosis
     Dosage: 45 MILLIGRAM, BID
     Dates: start: 20240117
  2. KOSELUGO [Suspect]
     Active Substance: SELUMETINIB
     Dosage: 20 MILLIGRAM, BID
     Dates: start: 20241113
  3. KOSELUGO [Suspect]
     Active Substance: SELUMETINIB
     Dosage: 45 MILLIGRAM, BID
     Dates: start: 20241113, end: 20241202
  4. KOSELUGO [Suspect]
     Active Substance: SELUMETINIB
  5. KOSELUGO [Suspect]
     Active Substance: SELUMETINIB

REACTIONS (5)
  - Rectal haemorrhage [Recovered/Resolved with Sequelae]
  - Asthenia [Recovered/Resolved with Sequelae]
  - Abdominal pain [Recovered/Resolved with Sequelae]
  - Acne [Recovered/Resolved with Sequelae]
  - Somnolence [Recovered/Resolved with Sequelae]
